FAERS Safety Report 8542448-X (Version None)
Quarter: 2012Q3

REPORT INFORMATION
  Report Type: 
  Country: None (occurrence: None)
  Receive Date: 20120726
  Receipt Date: 20110720
  Transmission Date: 20120928
  Serious: Yes (Hospitalization, Other)
  Sender: FDA-Public Use
  Company Number: US-ASTRAZENECA-2007UW26653

PATIENT
  Age: 492 Month
  Sex: Female

DRUGS (8)
  1. METFORMIN HYDROCHLORIDE [Concomitant]
     Route: 048
     Dates: start: 20031013
  2. NEOTRIN [Concomitant]
     Route: 048
     Dates: start: 20030103, end: 20030205
  3. BENAZEPRIL HYDROCHLORIDE [Concomitant]
     Route: 048
     Dates: start: 20031013
  4. LISINOPRIL [Concomitant]
     Route: 048
     Dates: start: 20031015
  5. SEROQUEL [Suspect]
     Dosage: 50 TO 250 MG
     Route: 048
     Dates: start: 20030217, end: 20030820
  6. INSULIN [Concomitant]
     Dosage: 16 UNITS BEFORE BREAKFAST AND DINNER
     Route: 058
     Dates: start: 20031013
  7. SINEQUAN [Concomitant]
     Route: 048
     Dates: start: 20030116, end: 20030216
  8. SEROQUEL [Suspect]
     Indication: SLEEP DISORDER
     Route: 048
     Dates: start: 20020101, end: 20030801

REACTIONS (8)
  - HYPERTENSION [None]
  - RENAL FAILURE ACUTE [None]
  - VISION BLURRED [None]
  - TYPE 2 DIABETES MELLITUS [None]
  - DIABETIC KETOACIDOSIS [None]
  - HYPERLIPIDAEMIA [None]
  - DIABETIC COMA [None]
  - BLOOD CHOLESTEROL INCREASED [None]
